FAERS Safety Report 5312071-9 (Version None)
Quarter: 2007Q2

REPORT INFORMATION
  Report Type: 
  Country: None (occurrence: None)
  Receive Date: 20070430
  Receipt Date: 20060707
  Transmission Date: 20071010
  Serious: No
  Sender: FDA-Public Use
  Company Number: 2006UW14018

PATIENT
  Age: 81 Year
  Sex: Female

DRUGS (2)
  1. NEXIUM [Suspect]
     Indication: GASTROOESOPHAGEAL REFLUX DISEASE
     Route: 048
     Dates: end: 20060701
  2. NEXIUM [Suspect]
     Route: 048
     Dates: start: 20060701

REACTIONS (4)
  - DIZZINESS [None]
  - FALL [None]
  - FEELING ABNORMAL [None]
  - VERTIGO [None]
